FAERS Safety Report 21760568 (Version 1)
Quarter: 2022Q4

REPORT INFORMATION
  Report Type: Spontaneous
  Country: US (occurrence: None)
  Receive Date: 20221220
  Receipt Date: 20221220
  Transmission Date: 20230112
  Serious: Yes (Disabling)
  Sender: FDA-Public Use
  Company Number: None

PATIENT
  Age: 61 Year
  Sex: Female
  Weight: 55.8 kg

DRUGS (3)
  1. TRAVOPROST [Suspect]
     Active Substance: TRAVOPROST
     Indication: Glaucoma
     Dosage: OTHER STRENGTH : ONE DROP;?OTHER QUANTITY : 1 DROP(S);?FREQUENCY : AT BEDTIME;?
     Route: 047
     Dates: start: 20220808, end: 20220912
  2. SYNTHROID [Concomitant]
     Active Substance: LEVOTHYROXINE SODIUM
  3. TRAVATAN Z [Concomitant]
     Active Substance: TRAVOPROST

REACTIONS (4)
  - Eye irritation [None]
  - Tongue discomfort [None]
  - Throat irritation [None]
  - Product substitution issue [None]

NARRATIVE: CASE EVENT DATE: 20220905
